FAERS Safety Report 8329483-1 (Version None)
Quarter: 2012Q2

REPORT INFORMATION
  Report Type: 
  Country: None (occurrence: None)
  Receive Date: 20120502
  Receipt Date: 20120420
  Transmission Date: 20120825
  Serious: Yes (Death, Hospitalization)
  Sender: FDA-Public Use
  Company Number: FR-PFIZER INC-2012103584

PATIENT
  Age: 95 Year
  Sex: Female

DRUGS (12)
  1. METRONIDAZOLE [Suspect]
     Indication: LUNG DISORDER
     Dosage: 500 MG, 3X/DAY
     Route: 042
     Dates: start: 20120213, end: 20120216
  2. BRICANYL [Concomitant]
     Dosage: UNK
  3. LASIX [Suspect]
     Indication: CARDIAC DISORDER
     Dosage: 40 MG
     Route: 042
     Dates: start: 20120213
  4. ROCEPHIN [Suspect]
     Indication: LUNG DISORDER
     Dosage: 1 G, 1X/DAY
     Route: 042
     Dates: start: 20120213, end: 20120216
  5. DIGOXIN [Suspect]
     Indication: ATRIAL FIBRILLATION
     Dosage: 0.25 MG, 2X/DAY
     Route: 042
     Dates: start: 20120213
  6. PANTOPRAZOLE [Suspect]
     Indication: GASTROOESOPHAGEAL REFLUX DISEASE
     Dosage: 20 MG, DAILY
     Route: 048
     Dates: start: 20120127, end: 20120216
  7. ASPIRIN [Suspect]
     Dosage: UNK
     Route: 048
     Dates: start: 20120127, end: 20120216
  8. ACETAMINOPHEN [Suspect]
     Dosage: 10 MG/ML, 1X/DAY
     Route: 042
     Dates: start: 20120213, end: 20120216
  9. BISOPROLOL FUMARATE [Suspect]
     Indication: CARDIAC DISORDER
     Dosage: 2.5 MG, 1X/DAY
     Route: 048
     Dates: start: 20120213
  10. FLUCONAZOLE [Suspect]
     Indication: LUNG DISORDER
     Dosage: UNK
     Route: 048
     Dates: start: 20120213, end: 20120216
  11. ACETAMINOPHEN [Suspect]
     Dosage: 3 G, 1X/DAY
     Route: 048
     Dates: start: 20120213, end: 20120216
  12. ATROVENT [Concomitant]
     Dosage: UNK

REACTIONS (4)
  - MALNUTRITION [None]
  - RESPIRATORY FAILURE [None]
  - HEPATITIS ACUTE [None]
  - HEPATIC FAILURE [None]
